FAERS Safety Report 9638021 (Version 3)
Quarter: 2013Q4

REPORT INFORMATION
  Report Type: Spontaneous
  Country: US (occurrence: US)
  Receive Date: 20131022
  Receipt Date: 20131031
  Transmission Date: 20140711
  Serious: Yes (Other)
  Sender: FDA-Public Use
  Company Number: US-MYLANLABS-2013S1021771

PATIENT
  Age: 68 Year
  Sex: Female

DRUGS (5)
  1. BENAZEPRIL HYDROCHLORIDE AND HYDROCHLOROTHIAZIDE [Suspect]
     Indication: BLOOD PRESSURE INCREASED
     Route: 048
     Dates: start: 20130326, end: 20130923
  2. BENAZEPRIL HYDROCHLORIDE AND HYDROCHLOROTHIAZIDE [Suspect]
     Indication: BLOOD PRESSURE INCREASED
     Route: 048
     Dates: start: 20130326, end: 20130923
  3. CENTRUM SILVER ADULTS 50+ [Concomitant]
     Dosage: CENTRUM SILVER WOMEN 50+
  4. CALCIUM + VITAMIN D /01483701/ [Concomitant]
  5. LEVOTHYROXINE [Concomitant]
     Indication: THYROID DISORDER

REACTIONS (4)
  - Gingival disorder [Not Recovered/Not Resolved]
  - Tooth injury [Recovered/Resolved]
  - Dental caries [Not Recovered/Not Resolved]
  - Tooth loss [Not Recovered/Not Resolved]
